FAERS Safety Report 19340505 (Version 2)
Quarter: 2021Q4

REPORT INFORMATION
  Report Type: Report from Study
  Country: BR (occurrence: BR)
  Receive Date: 20210530
  Receipt Date: 20211222
  Transmission Date: 20220303
  Serious: Yes (Hospitalization)
  Sender: FDA-Public Use
  Company Number: BR-JNJFOC-20210550357

PATIENT
  Age: 60 Year
  Sex: Female

DRUGS (1)
  1. SIMPONI [Suspect]
     Active Substance: GOLIMUMAB
     Indication: Rheumatoid arthritis
     Route: 058

REACTIONS (4)
  - COVID-19 [Not Recovered/Not Resolved]
  - Hypoacusis [Unknown]
  - Cardiac valve disease [Unknown]
  - Gait inability [Unknown]

NARRATIVE: CASE EVENT DATE: 20201101
